FAERS Safety Report 5756489-9 (Version None)
Quarter: 2008Q2

REPORT INFORMATION
  Report Type: 
  Country: None (occurrence: None)
  Receive Date: 20080529
  Receipt Date: 20080519
  Transmission Date: 20081010
  Serious: Yes (Other)
  Sender: FDA-Public Use
  Company Number: 163-21880-08051247

PATIENT
  Age: 77 Year
  Sex: Male

DRUGS (2)
  1. REVLIMID [Suspect]
     Indication: LYMPHOPROLIFERATIVE DISORDER
     Dosage: 10 MG, 28/28, ORAL
     Route: 048
     Dates: start: 20071229
  2. REVLIMID [Suspect]
     Indication: MYELODYSPLASTIC SYNDROME
     Dosage: 10 MG, 28/28, ORAL
     Route: 048
     Dates: start: 20071229

REACTIONS (4)
  - AGEUSIA [None]
  - CATARACT [None]
  - DISCOMFORT [None]
  - PARAESTHESIA [None]
